FAERS Safety Report 6259800-8 (Version None)
Quarter: 2009Q3

REPORT INFORMATION
  Report Type: 
  Country: None (occurrence: None)
  Receive Date: 20090706
  Receipt Date: 20090706
  Transmission Date: 20100115
  Serious: No
  Sender: FDA-Public Use
  Company Number: None

PATIENT
  Age: 44 Year
  Sex: Male
  Weight: 83.9154 kg

DRUGS (1)
  1. ZICAM NASAL GEL HOMEOPATHIC MATRIXX INITIATIVES, INC. [Suspect]
     Indication: NASOPHARYNGITIS
     Dosage: NASAL SPRAY 2-3/DAY NASAL
     Route: 045
     Dates: start: 20061101, end: 20070201

REACTIONS (3)
  - AGEUSIA [None]
  - ANOSMIA [None]
  - SINUSITIS [None]
